FAERS Safety Report 7088028-7 (Version None)
Quarter: 2010Q4

REPORT INFORMATION
  Report Type: 
  Country: None (occurrence: None)
  Receive Date: 20101108
  Receipt Date: 20101028
  Transmission Date: 20110411
  Serious: Yes (Life-Threatening, Hospitalization)
  Sender: FDA-Public Use
  Company Number: FR-SOLVAY-00210006547

PATIENT
  Age: 31037 Day
  Sex: Male

DRUGS (6)
  1. CARDENSIEL [Concomitant]
     Indication: PRODUCT USED FOR UNKNOWN INDICATION
     Dosage: DAILY DOSE: 1.25 MILLIGRAM(S)
     Route: 065
  2. KARDEGIC [Concomitant]
     Indication: PRODUCT USED FOR UNKNOWN INDICATION
     Dosage: DAILY DOSE: 160 MILLIGRAM(S)
     Route: 065
     Dates: end: 20100829
  3. KARDEGIC [Concomitant]
     Dosage: DAILY DOSE:  UNKNOWN
     Route: 065
     Dates: start: 20100902
  4. NOROXIN [Suspect]
     Indication: CYSTITIS
     Dosage: DAILY DOSE:  UNKNOWN
     Route: 048
     Dates: end: 20100101
  5. NOROXIN [Suspect]
     Dosage: DAILY DOSE:  UNKNOWN
     Route: 048
     Dates: start: 20100801, end: 20100801
  6. COVERSYL 4 MG [Suspect]
     Indication: HYPERTENSION
     Dosage: DAILY DOSE: 4 MILLIGRAM(S)
     Route: 065
     Dates: end: 20100829

REACTIONS (7)
  - ACUTE CORONARY SYNDROME [None]
  - ACUTE PULMONARY OEDEMA [None]
  - CONFUSIONAL STATE [None]
  - MOTOR DYSFUNCTION [None]
  - RENAL FAILURE ACUTE [None]
  - SUBDURAL HAEMATOMA [None]
  - THROMBOCYTOPENIA [None]
